FAERS Safety Report 8396213-7 (Version None)
Quarter: 2012Q2

REPORT INFORMATION
  Report Type: 
  Country: None (occurrence: None)
  Receive Date: 20120530
  Receipt Date: 20120521
  Transmission Date: 20120825
  Serious: Yes (Hospitalization, Other)
  Sender: FDA-Public Use
  Company Number: CN-GLAXOSMITHKLINE-B0804379A

PATIENT
  Age: 64 Year
  Sex: Female

DRUGS (6)
  1. AZTREONAM [Concomitant]
  2. MICAFUNGIN [Concomitant]
  3. LEVOFLOXACIN [Concomitant]
  4. CARBOPLATIN [Concomitant]
     Indication: LUNG NEOPLASM MALIGNANT
     Dosage: 400MG PER DAY
     Dates: start: 20101102, end: 20101102
  5. LAMIVUDINE (EPIVIR HBV) [Suspect]
     Indication: HEPATITIS B
     Dosage: 100MG PER DAY
     Route: 048
     Dates: start: 20100101
  6. PACLITAXEL [Concomitant]
     Indication: LUNG NEOPLASM MALIGNANT
     Dosage: 240MG PER DAY
     Dates: start: 20101102, end: 20101102

REACTIONS (1)
  - HEARING IMPAIRED [None]
